FAERS Safety Report 15706336 (Version 1)
Quarter: 2018Q4

REPORT INFORMATION
  Report Type: Other
  Country: None (occurrence: US)
  Receive Date: 20181210
  Receipt Date: 20181210
  Transmission Date: 20190205
  Serious: Yes (Other)
  Sender: FDA-Public Use
  Company Number: US-MEDAC PHARMA, INC.-2059933

PATIENT
  Age: 12 Year
  Sex: Female

DRUGS (3)
  1. PREDNISOLONE. [Suspect]
     Active Substance: PREDNISOLONE
  2. METHOTREXATE. [Suspect]
     Active Substance: METHOTREXATE
  3. TACROLIMUS. [Suspect]
     Active Substance: TACROLIMUS

REACTIONS (2)
  - BK virus infection [Unknown]
  - JC virus infection [Unknown]
